FAERS Safety Report 17651623 (Version 1)
Quarter: 2020Q2

REPORT INFORMATION
  Report Type: Spontaneous
  Country: US (occurrence: US)
  Receive Date: 20200409
  Receipt Date: 20200409
  Transmission Date: 20200713
  Serious: No
  Sender: FDA-Public Use
  Company Number: US-AMGEN-USASP2020057588

PATIENT

DRUGS (1)
  1. REPATHA [Suspect]
     Active Substance: EVOLOCUMAB
     Indication: HYPERLIPIDAEMIA
     Dosage: UNK
     Route: 065

REACTIONS (5)
  - Influenza [Not Recovered/Not Resolved]
  - Gait inability [Recovered/Resolved]
  - Dyspepsia [Recovered/Resolved]
  - Disturbance in attention [Recovered/Resolved]
  - Back pain [Not Recovered/Not Resolved]
